FAERS Safety Report 8299277-4 (Version None)
Quarter: 2012Q2

REPORT INFORMATION
  Report Type: 
  Country: None (occurrence: None)
  Receive Date: 20120419
  Receipt Date: 20120417
  Transmission Date: 20120825
  Serious: Yes (Death, Hospitalization, Disabling, Other)
  Sender: FDA-Public Use
  Company Number: JP-PFIZER INC-2012033429

PATIENT
  Age: 46 Year
  Sex: Female

DRUGS (7)
  1. ZITHROMAX [Suspect]
     Indication: NASOPHARYNGITIS
     Dosage: 500 MG, 1X/DAY
     Route: 048
     Dates: start: 20120105, end: 20120107
  2. ZITHROMAX [Suspect]
     Indication: DYSPNOEA
  3. BAKUMONDOUTO [Concomitant]
     Dosage: 27 G, 1X/DAY
     Route: 048
     Dates: start: 20120105, end: 20120107
  4. ASVERIN [Concomitant]
     Dosage: 60 MG, 1X/DAY
     Route: 048
     Dates: start: 20120105, end: 20120107
  5. HOKUNALIN [Concomitant]
     Dosage: 2 MG, 1X/DAY
     Route: 062
     Dates: start: 20120105, end: 20120107
  6. MUCOSOLVAN [Concomitant]
     Dosage: 45 MG, 1X/DAY
     Route: 048
     Dates: start: 20120105, end: 20120107
  7. DEPAS [Concomitant]
     Dosage: 0.5 MG, 1X/DAY
     Route: 048
     Dates: start: 20120105

REACTIONS (5)
  - VENTRICULAR FIBRILLATION [None]
  - BRAIN DEATH [None]
  - VENTRICULAR TACHYCARDIA [None]
  - CARDIO-RESPIRATORY ARREST [None]
  - ELECTROCARDIOGRAM QT PROLONGED [None]
